FAERS Safety Report 14515717 (Version 1)
Quarter: 2018Q1

REPORT INFORMATION
  Report Type: Report from Study
  Country: PL (occurrence: PL)
  Receive Date: 20180211
  Receipt Date: 20180211
  Transmission Date: 20180509
  Serious: Yes (Other)
  Sender: FDA-Public Use
  Company Number: PL-CONCORDIA PHARMACEUTICALS INC.-E2B_00009841

PATIENT
  Sex: Male

DRUGS (3)
  1. PREDNISOLONE. [Suspect]
     Active Substance: PREDNISOLONE
     Indication: PLASMA CELL MYELOMA
     Dosage: DOSAGE FORM: UNSPECIFIED
     Route: 065
     Dates: start: 20140310, end: 20150310
  2. BORTEZOMIB [Suspect]
     Active Substance: BORTEZOMIB
     Indication: PLASMA CELL MYELOMA
     Dosage: DOSAGE FORM: LYOPHILIZED POWDER
     Route: 065
     Dates: start: 20140310, end: 20150310
  3. MELPHALAN. [Suspect]
     Active Substance: MELPHALAN
     Indication: PLASMA CELL MYELOMA
     Dosage: DOSAGE FORM: UNSPECIFIED
     Route: 065
     Dates: start: 20140310, end: 20150310

REACTIONS (3)
  - Disease progression [Unknown]
  - Drug ineffective [Unknown]
  - Polyneuropathy [Unknown]
